FAERS Safety Report 18860961 (Version 1)
Quarter: 2021Q1

REPORT INFORMATION
  Report Type: Spontaneous
  Country: FR (occurrence: FR)
  Receive Date: 20210208
  Receipt Date: 20210208
  Transmission Date: 20210420
  Serious: Yes (Hospitalization)
  Sender: FDA-Public Use
  Company Number: NVSC2021FR023625

PATIENT
  Age: 14 Year
  Sex: Female
  Weight: 49.8 kg

DRUGS (3)
  1. TRAMADOL. [Suspect]
     Active Substance: TRAMADOL
     Indication: POISONING DELIBERATE
     Dosage: 300 MG, ONCE/SINGLE
     Route: 048
     Dates: start: 20210108, end: 20210108
  2. ACTISKENAN [Suspect]
     Active Substance: MORPHINE SULFATE
     Indication: POISONING DELIBERATE
     Dosage: 20 MG, ONCE/SINGLE
     Route: 048
     Dates: start: 20210107, end: 20210108
  3. PARACETAMOL [Suspect]
     Active Substance: ACETAMINOPHEN
     Indication: POISONING DELIBERATE
     Dosage: 6 G, ONCE/SINGLE
     Route: 048
     Dates: start: 20210107, end: 20210107

REACTIONS (3)
  - Intentional overdose [Recovered/Resolved]
  - Abdominal pain lower [Recovered/Resolved]
  - Vomiting [Recovered/Resolved]

NARRATIVE: CASE EVENT DATE: 20210108
